FAERS Safety Report 15111037 (Version 2)
Quarter: 2018Q3

REPORT INFORMATION
  Report Type: Spontaneous
  Country: JP (occurrence: JP)
  Receive Date: 20180705
  Receipt Date: 20180718
  Transmission Date: 20181010
  Serious: Yes (Other)
  Sender: FDA-Public Use
  Company Number: JP-JNJFOC-20180632382

PATIENT
  Age: 90 Year
  Sex: Female

DRUGS (4)
  1. REBAMIPIDE [Concomitant]
     Active Substance: REBAMIPIDE
     Route: 065
  2. REMINYL [Suspect]
     Active Substance: GALANTAMINE
     Indication: PRODUCT USED FOR UNKNOWN INDICATION
     Route: 048
  3. LORCAM [Suspect]
     Active Substance: LORNOXICAM
     Indication: BACK PAIN
     Route: 048
  4. REMINYL [Suspect]
     Active Substance: GALANTAMINE
     Indication: PRODUCT USED FOR UNKNOWN INDICATION
     Route: 048
     Dates: start: 20180710

REACTIONS (1)
  - Gastric perforation [Recovered/Resolved]

NARRATIVE: CASE EVENT DATE: 20180602
